FAERS Safety Report 7422204-6 (Version None)
Quarter: 2011Q2

REPORT INFORMATION
  Report Type: 
  Country: None (occurrence: None)
  Receive Date: 20110418
  Receipt Date: 20110405
  Transmission Date: 20111010
  Serious: Yes (Other)
  Sender: FDA-Public Use
  Company Number: GB-MYLANLABS-2011S1007149

PATIENT
  Age: 55 Year
  Sex: Female

DRUGS (2)
  1. ATENOLOL [Suspect]
     Indication: HEART RATE IRREGULAR
     Route: 048
  2. HORMONE THERAPY [Concomitant]
     Indication: PRODUCT USED FOR UNKNOWN INDICATION

REACTIONS (8)
  - DISCOMFORT [None]
  - PANIC REACTION [None]
  - ANXIETY [None]
  - PALPITATIONS [None]
  - DEPRESSION [None]
  - MALAISE [None]
  - PRODUCT QUALITY ISSUE [None]
  - NIGHTMARE [None]
